FAERS Safety Report 8471888-2 (Version None)
Quarter: 2012Q2

REPORT INFORMATION
  Report Type: 
  Country: None (occurrence: None)
  Receive Date: 20120323
  Receipt Date: 20111209
  Transmission Date: 20120825
  Serious: Yes (Hospitalization)
  Sender: FDA-Public Use
  Company Number: 163-21880-11103165

PATIENT
  Age: 68 Year
  Sex: Male

DRUGS (3)
  1. REVLIMID [Suspect]
     Dosage: 10 MG, 1 IN 1 D, PO, 5 MG, 1 IN 1 D, PO/ON HOLD
     Route: 048
     Dates: start: 20100301
  2. REVLIMID [Suspect]
     Dosage: 10 MG, 1 IN 1 D, PO, 5 MG, 1 IN 1 D, PO/ON HOLD
     Route: 048
     Dates: start: 20091001
  3. DEXAMETHASONE [Concomitant]

REACTIONS (1)
  - PNEUMONIA [None]
